FAERS Safety Report 16772669 (Version 2)
Quarter: 2019Q3

REPORT INFORMATION
  Report Type: Spontaneous
  Country: JP (occurrence: JP)
  Receive Date: 20190904
  Receipt Date: 20190919
  Transmission Date: 20191005
  Serious: Yes (Death, Life-Threatening, Hospitalization, Other)
  Sender: FDA-Public Use
  Company Number: JP-SA-2019SA184800

PATIENT
  Age: 66 Year
  Sex: Male
  Weight: 52 kg

DRUGS (18)
  1. 5-FU [FLUOROURACIL] [Concomitant]
     Active Substance: FLUOROURACIL
     Indication: METASTASES TO LUNG
     Dosage: 450 MG, 1X
     Route: 040
     Dates: start: 20190614, end: 20190614
  2. ZALTRAP [Suspect]
     Active Substance: ZIV-AFLIBERCEPT
     Indication: RECTOSIGMOID CANCER
     Dosage: DOSE: 4 MG/KG (170 MG), 1X
     Route: 041
     Dates: start: 20190614, end: 20190614
  3. ZALTRAP [Suspect]
     Active Substance: ZIV-AFLIBERCEPT
     Indication: METASTASES TO LUNG
  4. 5-FU [FLUOROURACIL] [Concomitant]
     Active Substance: FLUOROURACIL
     Indication: RECTOSIGMOID CANCER
     Dosage: DAILY DOSE: 2500 MG, 1X
     Route: 041
     Dates: start: 20190614, end: 20190614
  5. LEUCOVORIN CA [Concomitant]
     Active Substance: LEUCOVORIN CALCIUM
     Indication: DISEASE RECURRENCE
  6. IRINOTECAN [Suspect]
     Active Substance: IRINOTECAN
     Indication: DISEASE RECURRENCE
  7. LEUCOVORIN CA [Concomitant]
     Active Substance: LEUCOVORIN CALCIUM
     Indication: RECTOSIGMOID CANCER
     Dosage: DAILY DOSE: 330 MG, 1X
     Route: 065
     Dates: start: 20190614, end: 20190614
  8. LEUCOVORIN CA [Concomitant]
     Active Substance: LEUCOVORIN CALCIUM
     Indication: METASTASES TO LUNG
  9. ALOXI [Concomitant]
     Active Substance: PALONOSETRON HYDROCHLORIDE
     Indication: PREMEDICATION
     Dosage: DAILY DOSE: 75 MG (EVERY ADMINISTRATION OF ZALTRAP)
     Route: 065
  10. 5-FU [FLUOROURACIL] [Concomitant]
     Active Substance: FLUOROURACIL
     Indication: METASTASES TO LIVER
  11. ZALTRAP [Suspect]
     Active Substance: ZIV-AFLIBERCEPT
     Indication: METASTASES TO LIVER
  12. IRINOTECAN [Suspect]
     Active Substance: IRINOTECAN
     Indication: RECTOSIGMOID CANCER
     Dosage: DOSE: 150 MG, 1X
     Route: 041
     Dates: start: 20190614, end: 20190614
  13. IRINOTECAN [Suspect]
     Active Substance: IRINOTECAN
     Indication: METASTASES TO LUNG
  14. LEUCOVORIN CA [Concomitant]
     Active Substance: LEUCOVORIN CALCIUM
     Indication: METASTASES TO LIVER
  15. DEXART [Concomitant]
     Active Substance: DEXAMETHASONE SODIUM PHOSPHATE
     Indication: PREMEDICATION
     Dosage: DAILY DOSE: 6.6 MG (EVERY ADMINISTRATION OF ZALTRAP)
     Route: 065
  16. ZALTRAP [Suspect]
     Active Substance: ZIV-AFLIBERCEPT
     Indication: DISEASE RECURRENCE
  17. IRINOTECAN [Suspect]
     Active Substance: IRINOTECAN
     Indication: METASTASES TO LUNG
  18. 5-FU [FLUOROURACIL] [Concomitant]
     Active Substance: FLUOROURACIL
     Indication: DISEASE RECURRENCE

REACTIONS (7)
  - Gastrointestinal haemorrhage [Recovered/Resolved]
  - Febrile neutropenia [Fatal]
  - Decreased appetite [Fatal]
  - Pneumonia [Fatal]
  - Respiratory failure [Fatal]
  - General physical health deterioration [Unknown]
  - Bone marrow failure [Recovered/Resolved]

NARRATIVE: CASE EVENT DATE: 2019
